FAERS Safety Report 17260715 (Version 1)
Quarter: 2020Q1

REPORT INFORMATION
  Report Type: Other
  Country: CA (occurrence: CA)
  Receive Date: 20200113
  Receipt Date: 20200113
  Transmission Date: 20200409
  Serious: Yes (Hospitalization, Other)
  Sender: FDA-Public Use
  Company Number: CA-APOTEX-2018AP008483

PATIENT
  Age: 13 Year
  Sex: Male

DRUGS (4)
  1. DOXYCYCLINE. [Suspect]
     Active Substance: DOXYCYCLINE
     Indication: ACNE CONGLOBATA
     Route: 065
  2. APO-DOXY CAP 100MG [Suspect]
     Active Substance: DOXYCYCLINE HYCLATE
     Indication: ACNE CONGLOBATA
     Dosage: UNK
     Route: 065
  3. ISOTRETINOIN. [Suspect]
     Active Substance: ISOTRETINOIN
     Indication: ACNE CONGLOBATA
     Route: 065
  4. ISOTRETINOIN. [Suspect]
     Active Substance: ISOTRETINOIN
     Dosage: 0.5 MG/KG, QD
     Route: 065

REACTIONS (11)
  - Pyrexia [Unknown]
  - Neutrophilic dermatosis [Unknown]
  - Drug ineffective [Unknown]
  - Off label use [Unknown]
  - Product administered to patient of inappropriate age [Unknown]
  - Acne [Unknown]
  - Acne conglobata [Unknown]
  - Arthralgia [Unknown]
  - Condition aggravated [Unknown]
  - Intentional product use issue [Unknown]
  - Myalgia [Unknown]
